FAERS Safety Report 18540116 (Version 1)
Quarter: 2020Q4

REPORT INFORMATION
  Report Type: Report from Study
  Country: CA (occurrence: CA)
  Receive Date: 20201124
  Receipt Date: 20201124
  Transmission Date: 20210114
  Serious: Yes (Other)
  Sender: FDA-Public Use
  Company Number: CA-GLAXOSMITHKLINE-CA2020AMR228480

PATIENT
  Sex: Male
  Weight: 90.9 kg

DRUGS (3)
  1. SPIRIVA [Suspect]
     Active Substance: TIOTROPIUM BROMIDE MONOHYDRATE
     Indication: RESPIRATORY DISORDER
     Dosage: UNK
  2. SALBUTAMOL SULPHATE [Suspect]
     Active Substance: ALBUTEROL SULFATE
     Indication: INHALATION THERAPY
     Dosage: 4 PUFF(S)
  3. SYMBICORT [Suspect]
     Active Substance: BUDESONIDE\FORMOTEROL FUMARATE DIHYDRATE
     Indication: RESPIRATORY DISORDER
     Dosage: UNK

REACTIONS (7)
  - Obstructive airways disorder [Unknown]
  - Sputum abnormal [Unknown]
  - Asthma [Unknown]
  - Blood count abnormal [Unknown]
  - Cough [Unknown]
  - Therapeutic product effect incomplete [Unknown]
  - Dyspnoea exertional [Unknown]
